FAERS Safety Report 4936193-7 (Version None)
Quarter: 2006Q1

REPORT INFORMATION
  Report Type: 
  Country: None (occurrence: None)
  Receive Date: 20060307
  Receipt Date: 20051128
  Transmission Date: 20060701
  Serious: No
  Sender: FDA-Public Use
  Company Number: US-GLAXOSMITHKLINE-A0584203A

PATIENT
  Age: 69 Year
  Sex: Male

DRUGS (3)
  1. REQUIP [Suspect]
     Indication: RESTLESS LEGS SYNDROME
     Dosage: 2MG UNKNOWN
     Route: 048
  2. LEXAPRO [Concomitant]
     Dosage: 20MG UNKNOWN
     Route: 065
  3. FOSAMAX [Concomitant]
     Dosage: 20MG UNKNOWN

REACTIONS (5)
  - DYSPEPSIA [None]
  - HEADACHE [None]
  - ILL-DEFINED DISORDER [None]
  - MUSCLE SPASMS [None]
  - RESTLESS LEGS SYNDROME [None]
